FAERS Safety Report 7984093-0 (Version None)
Quarter: 2011Q4

REPORT INFORMATION
  Report Type: 
  Country: None (occurrence: None)
  Receive Date: 20111216
  Receipt Date: 20111214
  Transmission Date: 20120403
  Serious: No
  Sender: FDA-Public Use
  Company Number: US-PFIZER INC-2011305449

PATIENT
  Sex: Male
  Weight: 65.76 kg

DRUGS (10)
  1. REMERON [Suspect]
     Indication: DECREASED APPETITE
  2. VITAMIN B COMPLEX CAP [Concomitant]
     Dosage: UNK
  3. ASPIRIN [Concomitant]
     Indication: CARDIAC DISORDER
     Dosage: UNK
  4. ALPRAZOLAM [Suspect]
     Dosage: 2 MG, 3X/DAY
     Dates: start: 20111201
  5. REMERON [Suspect]
     Indication: SLEEP DISORDER
     Dosage: 15 MG, UNK
     Route: 048
  6. ALPRAZOLAM [Suspect]
     Indication: ANXIETY
     Dosage: 2 MG, 3X/DAY
     Dates: start: 20110101, end: 20110101
  7. ALPRAZOLAM [Suspect]
     Indication: PANIC ATTACK
  8. CELEXA [Concomitant]
     Indication: PSYCHOTIC DISORDER
     Dosage: 10 MG, DAILY
     Route: 048
  9. SIMVASTATIN [Concomitant]
     Indication: BLOOD CHOLESTEROL ABNORMAL
     Dosage: UNK
  10. ALPRAZOLAM [Suspect]

REACTIONS (7)
  - ABDOMINAL PAIN [None]
  - ABDOMINAL DISCOMFORT [None]
  - WEIGHT DECREASED [None]
  - SOMNOLENCE [None]
  - DRUG INEFFECTIVE [None]
  - GASTROINTESTINAL PAIN [None]
  - DECREASED APPETITE [None]
